FAERS Safety Report 25984449 (Version 1)
Quarter: 2025Q4

REPORT INFORMATION
  Report Type: Spontaneous
  Country: US (occurrence: None)
  Receive Date: 20251031
  Receipt Date: 20251031
  Transmission Date: 20260118
  Serious: No
  Sender: FDA-CTU
  Company Number: None

PATIENT
  Age: 62 Year
  Sex: Female
  Weight: 83.25 kg

DRUGS (1)
  1. VTAMA [Suspect]
     Active Substance: TAPINAROF
     Indication: Dry skin
     Dosage: OTHER QUANTITY : 1 1;?FREQUENCY : AT BEDTIME;?
     Route: 061
     Dates: start: 20251015

REACTIONS (2)
  - Nasopharyngitis [None]
  - Acne [None]

NARRATIVE: CASE EVENT DATE: 20251022
